FAERS Safety Report 7062063-7 (Version None)
Quarter: 2010Q4

REPORT INFORMATION
  Report Type: 
  Country: None (occurrence: None)
  Receive Date: 20101026
  Receipt Date: 20101020
  Transmission Date: 20110411
  Serious: Yes (Other)
  Sender: FDA-Public Use
  Company Number: B0673331A

PATIENT
  Sex: Female
  Weight: 45 kg

DRUGS (2)
  1. LAMICTAL [Suspect]
     Indication: EPILEPSY
     Route: 048
  2. ZARONTIN [Concomitant]
     Dosage: 7ML TWICE PER DAY
     Route: 048

REACTIONS (4)
  - EPILEPSY [None]
  - GASTROINTESTINAL DISORDER [None]
  - NAUSEA [None]
  - PRODUCT QUALITY ISSUE [None]
